FAERS Safety Report 6613665-0 (Version None)
Quarter: 2010Q1

REPORT INFORMATION
  Report Type: 
  Country: None (occurrence: None)
  Receive Date: 20100304
  Receipt Date: 20100225
  Transmission Date: 20100710
  Serious: Yes (Hospitalization)
  Sender: FDA-Public Use
  Company Number: GB-ELI_LILLY_AND_COMPANY-GB201002007360

PATIENT
  Sex: Male
  Weight: 55 kg

DRUGS (2)
  1. GEMCITABINE HCL [Suspect]
     Indication: PANCREATIC CARCINOMA
     Dosage: 700 MG, WEEKLY (1/W) FOR 3 WEEKS THEN 1 WEEKS REST
     Route: 042
     Dates: start: 20080414, end: 20081208
  2. AG-013736(AXITINIB) [Suspect]
     Indication: PANCREATIC CARCINOMA
     Dosage: 5 MG, 2/D
     Route: 048
     Dates: start: 20080414, end: 20081221

REACTIONS (2)
  - CONFUSIONAL STATE [None]
  - DIARRHOEA [None]
